FAERS Safety Report 8342127-8 (Version None)
Quarter: 2012Q2

REPORT INFORMATION
  Report Type: 
  Country: None (occurrence: None)
  Receive Date: 20120507
  Receipt Date: 20120501
  Transmission Date: 20120825
  Serious: No
  Sender: FDA-Public Use
  Company Number: US-PFIZER INC-2012082923

PATIENT
  Sex: Female

DRUGS (2)
  1. POTASSIUM PENICILLIN G [Suspect]
     Dosage: UNK
  2. ACTIFED [Suspect]
     Dosage: UNK

REACTIONS (1)
  - NO ADVERSE EVENT [None]
